FAERS Safety Report 12914901 (Version 1)
Quarter: 2016Q4

REPORT INFORMATION
  Report Type: Spontaneous
  Country: US (occurrence: US)
  Receive Date: 20161106
  Receipt Date: 20161106
  Transmission Date: 20170207
  Serious: No
  Sender: FDA-Public Use
  Company Number: US-RELYPSA-RLY2016002234

PATIENT
  Age: 76 Year
  Sex: Male

DRUGS (8)
  1. ATORVAST [Concomitant]
  2. SODIUM POLYSTYRENE SULFONATE. [Concomitant]
     Active Substance: SODIUM POLYSTYRENE SULFONATE
  3. ALLOPURINOL. [Concomitant]
     Active Substance: ALLOPURINOL
  4. VELTASSA [Suspect]
     Active Substance: PATIROMER
     Indication: HYPERKALAEMIA
     Dosage: 8.4 G, QD
     Route: 048
     Dates: start: 20160621, end: 20160817
  5. LEVOTHYROX [Concomitant]
     Active Substance: LEVOTHYROXINE
  6. CHLORTHALIDONE. [Concomitant]
     Active Substance: CHLORTHALIDONE
  7. LOSARTAN. [Concomitant]
     Active Substance: LOSARTAN
  8. METOPROLOL. [Concomitant]
     Active Substance: METOPROLOL

REACTIONS (2)
  - Blood potassium increased [Unknown]
  - Constipation [Unknown]

NARRATIVE: CASE EVENT DATE: 201608
